FAERS Safety Report 8486980-6 (Version None)
Quarter: 2012Q3

REPORT INFORMATION
  Report Type: 
  Country: None (occurrence: None)
  Receive Date: 20120704
  Receipt Date: 20120626
  Transmission Date: 20120928
  Serious: Yes (Hospitalization, Other)
  Sender: FDA-Public Use
  Company Number: PHHY2012DE039471

PATIENT
  Age: 54 Year
  Sex: Male
  Weight: 100 kg

DRUGS (4)
  1. GILENYA [Suspect]
     Indication: RELAPSING-REMITTING MULTIPLE SCLEROSIS
     Dosage: 0.5 MG, QD
     Route: 048
     Dates: start: 20110701, end: 20120508
  2. METOPROLOL TARTRATE [Concomitant]
     Indication: HYPERTENSION
     Dosage: 95 MG, QD
     Route: 048
  3. AMLODIPINE [Concomitant]
     Indication: HYPERTENSION
     Dosage: 5 MG, QD
     Route: 048
  4. CITALOPRAM HYDROBROMIDE [Concomitant]
     Indication: DEPRESSION
     Dosage: 30 MG, QD
     Route: 048

REACTIONS (37)
  - HEMIPARESIS [None]
  - LOSS OF PROPRIOCEPTION [None]
  - OSTEOARTHRITIS [None]
  - BLOOD PHOSPHORUS INCREASED [None]
  - BLOOD ALKALINE PHOSPHATASE INCREASED [None]
  - CREATININE URINE DECREASED [None]
  - DISTURBANCE IN ATTENTION [None]
  - HEADACHE [None]
  - PROSTATOMEGALY [None]
  - URINE KETONE BODY PRESENT [None]
  - CD4/CD8 RATIO DECREASED [None]
  - CEREBELLAR SYNDROME [None]
  - AORTIC ARTERIOSCLEROSIS [None]
  - UROBILINOGEN URINE INCREASED [None]
  - CENTRAL NERVOUS SYSTEM LESION [None]
  - SPEECH DISORDER [None]
  - GAIT DISTURBANCE [None]
  - SLOW SPEECH [None]
  - BLOOD CHOLESTEROL INCREASED [None]
  - SPECIFIC GRAVITY URINE INCREASED [None]
  - URINE BILIRUBIN INCREASED [None]
  - LIGHT CHAIN ANALYSIS INCREASED [None]
  - FATIGUE [None]
  - LYMPHATIC DISORDER [None]
  - DIVERTICULUM [None]
  - LIGHT CHAIN ANALYSIS ABNORMAL [None]
  - IMMUNOGLOBULINS INCREASED [None]
  - PLASMACYTOSIS [None]
  - HEPATIC CYST [None]
  - GAMMA-GLUTAMYLTRANSFERASE INCREASED [None]
  - MULTIPLE SCLEROSIS RELAPSE [None]
  - BALANCE DISORDER [None]
  - COGNITIVE DISORDER [None]
  - ATAXIA [None]
  - DIZZINESS [None]
  - RETICULOCYTE COUNT DECREASED [None]
  - HYPOAESTHESIA [None]
